FAERS Safety Report 20334741 (Version 1)
Quarter: 2022Q1

REPORT INFORMATION
  Report Type: Spontaneous
  Country: US (occurrence: None)
  Receive Date: 20220114
  Receipt Date: 20220114
  Transmission Date: 20220423
  Serious: Yes (Hospitalization, Other)
  Sender: FDA-Public Use
  Company Number: US-ACS-002161

PATIENT
  Age: 55 Year
  Sex: Female
  Weight: 52.2 kg

DRUGS (20)
  1. MEROPENEM [Suspect]
     Active Substance: MEROPENEM
     Indication: Escherichia urinary tract infection
     Route: 065
  2. ERTAPENEM [Suspect]
     Active Substance: ERTAPENEM
     Indication: Escherichia urinary tract infection
     Route: 065
  3. GABAPENTIN [Concomitant]
     Active Substance: GABAPENTIN
     Route: 065
  4. BUPROPION [Concomitant]
     Active Substance: BUPROPION
     Route: 065
  5. ESCITALOPRAM [Concomitant]
     Active Substance: ESCITALOPRAM OXALATE
     Route: 065
  6. MEMANTINE [Concomitant]
     Active Substance: MEMANTINE
     Route: 065
  7. MODAFINIL [Concomitant]
     Active Substance: MODAFINIL
     Route: 065
  8. ALPRAZOLAM [Concomitant]
     Active Substance: ALPRAZOLAM
     Route: 065
  9. CLONAZEPAM [Concomitant]
     Active Substance: CLONAZEPAM
     Route: 065
  10. BACLOFEN [Concomitant]
     Active Substance: BACLOFEN
     Dosage: HIGH DOSE; TO TAKE UP TO 60 MG DAILY AS NEEDED
     Route: 065
  11. LUBIPROSTONE [Concomitant]
     Active Substance: LUBIPROSTONE
     Route: 065
  12. DALFAMPRIDINE [Concomitant]
     Active Substance: DALFAMPRIDINE
     Route: 065
  13. ASCORBIC ACID [Concomitant]
     Active Substance: ASCORBIC ACID
     Route: 065
  14. CEPHALEXIN [Concomitant]
     Active Substance: CEPHALEXIN
     Route: 065
  15. CHOLECALCIFEROL [Concomitant]
     Active Substance: CHOLECALCIFEROL
     Route: 065
  16. ACETAMINOPHEN\HYDROCODONE [Concomitant]
     Active Substance: ACETAMINOPHEN\HYDROCODONE
     Route: 065
  17. OCRELIZUMAB [Concomitant]
     Active Substance: OCRELIZUMAB
     Route: 065
  18. ONDANSETRON [Concomitant]
     Active Substance: ONDANSETRON
     Route: 065
  19. OXYBUTYNIN [Concomitant]
     Active Substance: OXYBUTYNIN
     Route: 065
  20. TRAZODONE [Concomitant]
     Active Substance: TRAZODONE HYDROCHLORIDE
     Route: 065

REACTIONS (2)
  - Encephalopathy [Recovering/Resolving]
  - Muscle spasticity [Recovering/Resolving]
